FAERS Safety Report 14448281 (Version 1)
Quarter: 2018Q1

REPORT INFORMATION
  Report Type: Spontaneous
  Country: US (occurrence: US)
  Receive Date: 20180126
  Receipt Date: 20180126
  Transmission Date: 20180509
  Serious: Yes (Hospitalization)
  Sender: FDA-Public Use
  Company Number: None

PATIENT
  Age: 46 Year
  Sex: Male

DRUGS (2)
  1. NEXAVAR [Concomitant]
     Active Substance: SORAFENIB
  2. VOSEVI [Suspect]
     Active Substance: SOFOSBUVIR\VELPATASVIR\VOXILAPREVIR
     Indication: HEPATITIS C
     Dosage: ROUTE - PO W/ FOOD
     Route: 048
     Dates: start: 20171113

REACTIONS (2)
  - Gastrointestinal haemorrhage [None]
  - Haemorrhage [None]

NARRATIVE: CASE EVENT DATE: 20171204
